FAERS Safety Report 25497284 (Version 1)
Quarter: 2025Q3

REPORT INFORMATION
  Report Type: Spontaneous
  Country: BR (occurrence: BR)
  Receive Date: 20250701
  Receipt Date: 20250701
  Transmission Date: 20251021
  Serious: Yes (Hospitalization, Other)
  Sender: NOVO NORDISK
  Company Number: BR-NOVOPROD-1465223

PATIENT
  Sex: Female
  Weight: 92 kg

DRUGS (3)
  1. VICTOZA [Suspect]
     Active Substance: LIRAGLUTIDE
     Indication: Diabetes mellitus
     Dosage: 0.25 MG, QD
     Dates: start: 2020
  2. VICTOZA [Suspect]
     Active Substance: LIRAGLUTIDE
     Dates: start: 2020, end: 2023
  3. OZEMPIC [Concomitant]
     Active Substance: SEMAGLUTIDE
     Indication: Product used for unknown indication

REACTIONS (8)
  - Venous occlusion [Recovered/Resolved]
  - Knee operation [Recovered/Resolved]
  - Dry mouth [Recovered/Resolved]
  - Nausea [Unknown]
  - Malaise [Recovered/Resolved]
  - Constipation [Recovered/Resolved]
  - Gastrooesophageal reflux disease [Recovered/Resolved]
  - Off label use [Recovered/Resolved]

NARRATIVE: CASE EVENT DATE: 20200101
